FAERS Safety Report 17819261 (Version 1)
Quarter: 2020Q2

REPORT INFORMATION
  Report Type: Spontaneous
  Country: GB (occurrence: GB)
  Receive Date: 20200523
  Receipt Date: 20200523
  Transmission Date: 20200714
  Serious: Yes (Other)
  Sender: FDA-Public Use
  Company Number: GB-UNICHEM PHARMACEUTICALS (USA) INC-UCM202005-000622

PATIENT
  Age: 59 Year
  Sex: Female

DRUGS (2)
  1. HYDROCHLOROTHIAZIDE. [Suspect]
     Active Substance: HYDROCHLOROTHIAZIDE
     Indication: FLUID RETENTION
     Dosage: UNKNOWN
  2. AMILORIDE [Concomitant]
     Active Substance: AMILORIDE
     Indication: FLUID RETENTION
     Dosage: UNKNOWN

REACTIONS (2)
  - Skin squamous cell carcinoma metastatic [Recovered/Resolved]
  - Chronic actinic dermatitis [Recovered/Resolved]
